FAERS Safety Report 19894109 (Version 1)
Quarter: 2021Q3

REPORT INFORMATION
  Report Type: Spontaneous
  Country: US (occurrence: US)
  Receive Date: 20210928
  Receipt Date: 20210928
  Transmission Date: 20211014
  Serious: Yes (Disabling, Other)
  Sender: FDA-Public Use
  Company Number: None

PATIENT
  Age: 73 Year
  Sex: Female
  Weight: 71.1 kg

DRUGS (29)
  1. LEVOCETIRIZINE [Suspect]
     Active Substance: LEVOCETIRIZINE
     Indication: RHINITIS ALLERGIC
     Dosage: ?          QUANTITY:1 TABLET(S);?
     Route: 048
  2. VITAMIN C [Concomitant]
     Active Substance: ASCORBIC ACID
  3. VITAMIN D [Concomitant]
     Active Substance: VITAMIN D NOS
  4. N?ACETYL CYSTEINE [Concomitant]
     Active Substance: ACETYLCYSTEINE
  5. AZELASTINE NASAL SPRAY [Concomitant]
     Active Substance: AZELASTINE
  6. OMEGA 3 [Concomitant]
     Active Substance: OMEGA-3 FATTY ACIDS
  7. CURCUMIN TURMERIC EXTRACT [Concomitant]
  8. LORAZEPAM. [Concomitant]
     Active Substance: LORAZEPAM
  9. IPRATROPIUM BROMIDE AND ALBUTEROL SULFATE [Concomitant]
     Active Substance: ALBUTEROL SULFATE\IPRATROPIUM BROMIDE
  10. ALBUTEROL INHALER [Concomitant]
     Active Substance: ALBUTEROL
  11. VALACYCLOVIR HCL [Concomitant]
     Active Substance: VALACYCLOVIR HYDROCHLORIDE
  12. PANTOPRAZOLE [Concomitant]
     Active Substance: PANTOPRAZOLE
  13. 50 + WOMEN MULTIVITAMIN [Concomitant]
  14. VITAMIN K2 [Concomitant]
     Active Substance: MENAQUINONE 6
  15. METHYLPREDNISOLONE. [Concomitant]
     Active Substance: METHYLPREDNISOLONE
  16. HYDROCODON HOMATROPIN [Concomitant]
  17. MELATONIN [Concomitant]
     Active Substance: MELATONIN
  18. DIGESTIVE ENZYMES [Concomitant]
     Active Substance: UNSPECIFIED INGREDIENT
  19. LEVOFLOXACIN. [Concomitant]
     Active Substance: LEVOFLOXACIN
  20. VITAMIN E [Concomitant]
     Active Substance: .ALPHA.-TOCOPHEROL
  21. BENZONATATE. [Concomitant]
     Active Substance: BENZONATATE
  22. FLUCONAZOLE. [Concomitant]
     Active Substance: FLUCONAZOLE
  23. CALCIUM [Concomitant]
     Active Substance: CALCIUM
  24. COD LIVER OIL [Concomitant]
     Active Substance: COD LIVER OIL
  25. AMLODIPINE [Concomitant]
     Active Substance: AMLODIPINE BESYLATE
  26. MAGNESIUM [Concomitant]
     Active Substance: MAGNESIUM
  27. POTASSIUM AND ZINC [Concomitant]
  28. COENZYME Q10 [Concomitant]
     Active Substance: DIETARY SUPPLEMENT\UBIDECARENONE
  29. DAIRY FREE PROBIOTIC [Concomitant]

REACTIONS (5)
  - Arthralgia [None]
  - Loss of personal independence in daily activities [None]
  - Musculoskeletal stiffness [None]
  - Myalgia [None]
  - Pain [None]

NARRATIVE: CASE EVENT DATE: 20210806
